FAERS Safety Report 18620628 (Version 1)
Quarter: 2020Q4

REPORT INFORMATION
  Report Type: Spontaneous
  Country: US (occurrence: US)
  Receive Date: 20201216
  Receipt Date: 20201216
  Transmission Date: 20210114
  Serious: Yes (Other)
  Sender: FDA-Public Use
  Company Number: US-STRIDES ARCOLAB LIMITED-2020SP011359

PATIENT
  Age: 80 Year
  Sex: Male

DRUGS (8)
  1. PREDNISOLONE. [Suspect]
     Active Substance: PREDNISOLONE
     Dosage: 30 MILLIGRAM, PER DAY
     Route: 048
  2. INTERFERON ALFA 2B [Suspect]
     Active Substance: INTERFERON ALFA-2B
     Indication: CYSTOID MACULAR OEDEMA
     Dosage: 1 MIU/ML, FOUR TIMES PER DAY
     Route: 065
  3. ACETAZOLAMIDE. [Suspect]
     Active Substance: ACETAZOLAMIDE
     Indication: CYSTOID MACULAR OEDEMA
     Route: 048
  4. PREDNISOLONE. [Suspect]
     Active Substance: PREDNISOLONE
     Dosage: 1 PERCENT, (TAPERED DOSE)
     Route: 061
  5. DORZOLAMIDE/TIMOLOL ACTAVIS [Concomitant]
     Indication: GLAUCOMA
     Dosage: UNK, BID
     Route: 065
  6. PREDNISOLONE. [Suspect]
     Active Substance: PREDNISOLONE
     Indication: IRITIS
     Dosage: UNK, SIX TIMES PER DAY IN OD
     Route: 065
  7. PREDNISOLONE. [Suspect]
     Active Substance: PREDNISOLONE
     Dosage: 1 PERCENT, QID  IN OD
     Route: 061
  8. LATANOPROST. [Concomitant]
     Active Substance: LATANOPROST
     Indication: IRITIS
     Dosage: UNK UNK, QD
     Route: 061

REACTIONS (4)
  - Drug ineffective [Unknown]
  - Abdominal discomfort [Unknown]
  - Off label use [Unknown]
  - Paraesthesia [Not Recovered/Not Resolved]
